FAERS Safety Report 8089220-5 (Version None)
Quarter: 2012Q1

REPORT INFORMATION
  Report Type: 
  Country: None (occurrence: None)
  Receive Date: 20120128
  Receipt Date: 20110627
  Transmission Date: 20120608
  Serious: No
  Sender: FDA-Public Use
  Company Number: US-ABBOTT-11P-163-0834704-00

PATIENT
  Age: 64 Year
  Sex: Female

DRUGS (3)
  1. JANUMET [Concomitant]
     Indication: DIABETES MELLITUS
  2. UNKNOWN HYPOTHYROID MEDICATION [Concomitant]
     Indication: HYPOTHYROIDISM
  3. HUMIRA [Suspect]
     Indication: PSORIASIS
     Dates: start: 20110501, end: 20110610

REACTIONS (1)
  - PSORIASIS [None]
